FAERS Safety Report 9753869 (Version 1)
Quarter: 2013Q4

REPORT INFORMATION
  Report Type: Spontaneous
  Country: US (occurrence: US)
  Receive Date: 20131213
  Receipt Date: 20131213
  Transmission Date: 20140711
  Serious: No
  Sender: FDA-Public Use
  Company Number: US-GILEAD-2010-0027665

PATIENT
  Sex: Female
  Weight: 108.86 kg

DRUGS (14)
  1. LETAIRIS [Suspect]
     Indication: PULMONARY ARTERIAL HYPERTENSION
     Route: 048
     Dates: start: 20090515
  2. LASIX [Concomitant]
  3. ALBUTEROL [Concomitant]
  4. KLOR-CON [Concomitant]
  5. OXYGEN [Concomitant]
  6. DYAZIDE [Concomitant]
  7. TYLENOL [Concomitant]
  8. LIPITOR [Concomitant]
  9. MOEXIPRIL [Concomitant]
  10. ADVAIR [Concomitant]
  11. ASPIRIN [Concomitant]
  12. PROAIR [Concomitant]
  13. IBUPROFEN [Concomitant]
  14. OTC SINUS TAB [Concomitant]

REACTIONS (1)
  - Nasopharyngitis [Unknown]
